FAERS Safety Report 9466052 (Version 1)
Quarter: 2013Q3

REPORT INFORMATION
  Report Type: Spontaneous
  Country: US (occurrence: None)
  Receive Date: 20130816
  Receipt Date: 20130816
  Transmission Date: 20140515
  Serious: Yes (Disabling, Other)
  Sender: FDA-Public Use
  Company Number: None

PATIENT
  Age: 62 Year
  Sex: Female
  Weight: 108.41 kg

DRUGS (2)
  1. MACROBID [Suspect]
     Indication: BRONCHITIS
     Dosage: THREE TIMES DAILY TAKEN BY MOUTH??APRIL OR MAY OF 2008
     Route: 048
  2. MACROBID [Suspect]
     Indication: SINUSITIS
     Dosage: THREE TIMES DAILY TAKEN BY MOUTH??APRIL OR MAY OF 2008
     Route: 048

REACTIONS (1)
  - Neuropathy peripheral [None]
